FAERS Safety Report 5933673-2 (Version None)
Quarter: 2008Q4

REPORT INFORMATION
  Report Type: 
  Country: None (occurrence: None)
  Receive Date: 20081024
  Receipt Date: 20081008
  Transmission Date: 20090506
  Serious: Yes (Other)
  Sender: FDA-Public Use
  Company Number: DSA_31438_2008

PATIENT
  Age: 37 Year
  Sex: Female

DRUGS (9)
  1. LORAZEPAM [Suspect]
     Indication: ANXIETY
     Dosage: (0.5 - 1 TABLET, INTERMITTENT ORAL), (0.5 - 1.5 MG PER DAY ORAL)
     Route: 048
     Dates: start: 20071120, end: 20080201
  2. LORAZEPAM [Suspect]
     Indication: DEPRESSION
     Dosage: (0.5 - 1 TABLET, INTERMITTENT ORAL), (0.5 - 1.5 MG PER DAY ORAL)
     Route: 048
     Dates: start: 20071120, end: 20080201
  3. LORAZEPAM [Suspect]
     Indication: ANXIETY
     Dosage: (0.5 - 1 TABLET, INTERMITTENT ORAL), (0.5 - 1.5 MG PER DAY ORAL)
     Route: 048
     Dates: start: 20080201, end: 20080201
  4. LORAZEPAM [Suspect]
     Indication: DEPRESSION
     Dosage: (0.5 - 1 TABLET, INTERMITTENT ORAL), (0.5 - 1.5 MG PER DAY ORAL)
     Route: 048
     Dates: start: 20080201, end: 20080201
  5. FLUOXETINE [Suspect]
     Indication: ANXIETY
     Dosage: (40 - 45 GM PER DAY ORAL)
     Route: 048
     Dates: start: 20071120, end: 20080126
  6. FLUOXETINE [Suspect]
     Indication: DEPRESSION
     Dosage: (40 - 45 GM PER DAY ORAL)
     Route: 048
     Dates: start: 20071120, end: 20080126
  7. CITALOPRAM HYDROBROMIDE [Suspect]
     Indication: ANXIETY
     Dosage: (20 MG QD ORAL)
     Route: 048
     Dates: start: 20080119
  8. CITALOPRAM HYDROBROMIDE [Suspect]
     Indication: DEPRESSION
     Dosage: (20 MG QD ORAL)
     Route: 048
     Dates: start: 20080119
  9. CORTISONE ACETATE TAB [Concomitant]

REACTIONS (4)
  - CAESAREAN SECTION [None]
  - COMPLEX REGIONAL PAIN SYNDROME [None]
  - DRUG EXPOSURE DURING PREGNANCY [None]
  - HYPEREMESIS GRAVIDARUM [None]
